FAERS Safety Report 5377170-4 (Version None)
Quarter: 2007Q3

REPORT INFORMATION
  Report Type: 
  Country: None (occurrence: None)
  Receive Date: 20070703
  Receipt Date: 20070621
  Transmission Date: 20080115
  Serious: Yes (Other)
  Sender: FDA-Public Use
  Company Number: US-ELI_LILLY_AND_COMPANY-US200705004146

PATIENT
  Age: 60 Year
  Sex: Male

DRUGS (9)
  1. BYETTA [Suspect]
     Indication: TYPE 2 DIABETES MELLITUS
     Dosage: 5 UG, 2/D
     Route: 058
     Dates: start: 20070401, end: 20070506
  2. BYETTA [Suspect]
     Dosage: 10 UG, 2/D
     Route: 058
     Dates: start: 20070507, end: 20070511
  3. METFORMIN [Concomitant]
     Dosage: 500 MG, 2/D
     Route: 065
  4. AMARYL [Concomitant]
  5. COUMADIN [Concomitant]
     Dosage: 7.5 MG, 2/D
     Route: 065
  6. DIGITEK [Concomitant]
     Dosage: 0.25 MG, DAILY (1/D)
     Route: 048
  7. COREG [Concomitant]
     Dosage: UNK, EACH MORNING
  8. AVANDIA [Concomitant]
     Dosage: 4 MG, 2/D
     Route: 065
  9. GLIMEPIRIDE [Concomitant]
     Dosage: 2 MG, 2/D
     Route: 048

REACTIONS (3)
  - PYREXIA [None]
  - REFUSAL OF TREATMENT BY PATIENT [None]
  - VOMITING [None]
